FAERS Safety Report 13606044 (Version 1)
Quarter: 2017Q2

REPORT INFORMATION
  Report Type: Spontaneous
  Country: US (occurrence: US)
  Receive Date: 20170602
  Receipt Date: 20170602
  Transmission Date: 20170830
  Serious: Yes (Hospitalization)
  Sender: FDA-Public Use
  Company Number: None

PATIENT
  Age: 69 Year
  Sex: Male
  Weight: 81.7 kg

DRUGS (2)
  1. WARFARIN [Suspect]
     Active Substance: WARFARIN
     Indication: ATRIAL FIBRILLATION
     Dates: start: 20170307, end: 20170328
  2. WARFARIN [Suspect]
     Active Substance: WARFARIN
     Indication: THROMBOSIS PROPHYLAXIS
     Dates: start: 20170307, end: 20170328

REACTIONS (11)
  - Anaemia [None]
  - Bacteraemia [None]
  - Pleural effusion [None]
  - Anticoagulation drug level above therapeutic [None]
  - Arthritis infective [None]
  - Osteomyelitis [None]
  - Muscle haemorrhage [None]
  - Gastrointestinal haemorrhage [None]
  - Staphylococcal infection [None]
  - Pneumonia aspiration [None]
  - Faeces discoloured [None]

NARRATIVE: CASE EVENT DATE: 20170329
